FAERS Safety Report 5670385-7 (Version None)
Quarter: 2008Q2

REPORT INFORMATION
  Report Type: 
  Country: None (occurrence: None)
  Receive Date: 20080303
  Receipt Date: 20070125
  Transmission Date: 20081010
  Serious: Yes (Other)
  Sender: FDA-Public Use
  Company Number: MK-6029599

PATIENT
  Age: 31 Year
  Sex: Female

DRUGS (5)
  1. AMNESTEEM [Suspect]
     Indication: ACNE
     Dosage: 10 MG;NULL_1_DAY
     Dates: start: 20061001, end: 20061101
  2. AMNESTEEM [Suspect]
     Indication: ACNE
     Dosage: 20 MG;
     Dates: start: 20061101, end: 20061201
  3. METFORMIN HCL [Concomitant]
  4. DROSPIRENONE [Concomitant]
  5. ETHINYL ESTRADIOL TAB [Concomitant]

REACTIONS (1)
  - BLOOD TRIGLYCERIDES INCREASED [None]
